FAERS Safety Report 17353487 (Version 1)
Quarter: 2020Q1

REPORT INFORMATION
  Report Type: Spontaneous
  Country: US (occurrence: US)
  Receive Date: 20200131
  Receipt Date: 20200131
  Transmission Date: 20200409
  Serious: Yes (Other)
  Sender: FDA-Public Use
  Company Number: US-009507513-2001USA009469

PATIENT
  Age: 70 Year
  Sex: Female

DRUGS (7)
  1. BRIDION [Suspect]
     Active Substance: SUGAMMADEX
     Dosage: 1 MILLIGRAM/KILOGRAM, ADDITIONAL DOSE OF 70 MG
     Route: 042
     Dates: start: 20200124, end: 20200124
  2. ROCURONIUM BROMIDE. [Suspect]
     Active Substance: ROCURONIUM BROMIDE
     Indication: MAINTENANCE OF ANAESTHESIA
     Dosage: 30 MILLIGRAM
     Dates: start: 20200124, end: 20200124
  3. TORADOL [Concomitant]
     Active Substance: KETOROLAC TROMETHAMINE
     Dosage: UNK
  4. BRIDION [Suspect]
     Active Substance: SUGAMMADEX
     Indication: NEUROMUSCULAR BLOCKADE REVERSAL
     Dosage: 4 MILLIGRAM/KILOGRAM, ONCE; TOTAL 295 MG
     Route: 042
     Dates: start: 20200124, end: 20200124
  5. ROCURONIUM BROMIDE. [Suspect]
     Active Substance: ROCURONIUM BROMIDE
     Indication: ENDOTRACHEAL INTUBATION
     Dosage: 50 MILLIGRAM
     Dates: start: 20200124, end: 20200124
  6. ZOFRAN [Concomitant]
     Active Substance: ONDANSETRON HYDROCHLORIDE
     Dosage: UNK
  7. DECADRON [Concomitant]
     Active Substance: DEXAMETHASONE
     Dosage: UNK

REACTIONS (2)
  - Extra dose administered [Unknown]
  - Neuromuscular block prolonged [Not Recovered/Not Resolved]

NARRATIVE: CASE EVENT DATE: 20200124
